FAERS Safety Report 5028186-9 (Version None)
Quarter: 2006Q2

REPORT INFORMATION
  Report Type: 
  Country: None (occurrence: None)
  Receive Date: 20060613
  Receipt Date: 20060602
  Transmission Date: 20061013
  Serious: Yes (Hospitalization, Other)
  Sender: FDA-Public Use
  Company Number: 2005068288

PATIENT
  Sex: Male
  Weight: 97.5234 kg

DRUGS (9)
  1. BEXTRA [Suspect]
     Indication: MUSCULOSKELETAL STIFFNESS
     Dosage: 10 MG (10 MG, 1 IN 1 D)
     Dates: start: 20020624
  2. BEXTRA [Suspect]
     Indication: MYALGIA
     Dosage: 10 MG (10 MG, 1 IN 1 D)
     Dates: start: 20020624
  3. AMBIEN [Concomitant]
  4. HYDROCODONE BITARTRATE + ACETAMINOPHEN [Concomitant]
  5. NEURONTIN [Concomitant]
  6. PREDNISONE TAB [Concomitant]
  7. CYCLOBENZAPRINE HCL [Concomitant]
  8. OMEPRAZOLE [Concomitant]
  9. METHOTREXATE [Concomitant]

REACTIONS (9)
  - BUNDLE BRANCH BLOCK RIGHT [None]
  - CEREBROVASCULAR ACCIDENT [None]
  - CORONARY ARTERY DISEASE [None]
  - DILATATION VENTRICULAR [None]
  - HYPERLIPIDAEMIA [None]
  - LOW DENSITY LIPOPROTEIN INCREASED [None]
  - MYOCARDIAL INFARCTION [None]
  - PERICARDIAL EFFUSION [None]
  - THROMBOSIS [None]
